FAERS Safety Report 5487863-6 (Version None)
Quarter: 2007Q4

REPORT INFORMATION
  Report Type: 
  Country: None (occurrence: None)
  Receive Date: 20071017
  Receipt Date: 20071008
  Transmission Date: 20080405
  Serious: Yes (Hospitalization)
  Sender: FDA-Public Use
  Company Number: CN-NOVOPROD-267706

PATIENT
  Age: 65 Year
  Sex: Female
  Weight: 68 kg

DRUGS (5)
  1. NOVOLOG MIX 70/30 [Suspect]
     Indication: DIABETES MELLITUS
     Dosage: 24 IU, QD
     Route: 058
     Dates: start: 20061229
  2. RAMIPRIL [Concomitant]
     Dosage: 5 MEQ, QD
     Route: 048
     Dates: start: 20070408
  3. ATORVASTATIN CALCIUM [Concomitant]
     Dosage: 20 MG, QD
     Route: 048
     Dates: start: 20070408
  4. NOVONORM [Concomitant]
     Dosage: 1 MG, QD
     Route: 048
     Dates: start: 20070608, end: 20070715
  5. ASPIRIN [Concomitant]
     Dosage: 100 MG, QD
     Route: 048
     Dates: start: 20070408

REACTIONS (4)
  - CHEST DISCOMFORT [None]
  - FEAR OF DEATH [None]
  - HYPOGLYCAEMIA [None]
  - TACHYCARDIA [None]
